FAERS Safety Report 6146687-7 (Version None)
Quarter: 2009Q2

REPORT INFORMATION
  Report Type: 
  Country: None (occurrence: None)
  Receive Date: 20090403
  Receipt Date: 20090403
  Transmission Date: 20091009
  Serious: Yes (Life-Threatening, Hospitalization)
  Sender: FDA-Public Use
  Company Number: None

PATIENT
  Age: 26 Year
  Sex: Male

DRUGS (1)
  1. OLANZAPINE [Suspect]
     Indication: AGITATION
     Dates: start: 20080708, end: 20080708

REACTIONS (5)
  - CONFUSIONAL STATE [None]
  - INCORRECT DOSE ADMINISTERED [None]
  - SEDATION [None]
  - SOMNOLENCE [None]
  - SUICIDE ATTEMPT [None]
